FAERS Safety Report 5195658-6 (Version None)
Quarter: 2007Q1

REPORT INFORMATION
  Report Type: 
  Country: None (occurrence: None)
  Receive Date: 20070102
  Receipt Date: 20061219
  Transmission Date: 20070707
  Serious: Yes (Hospitalization, Other)
  Sender: FDA-Public Use
  Company Number: US-AMGEN-US204088

PATIENT
  Sex: Male
  Weight: 13.6 kg

DRUGS (10)
  1. ARANESP [Suspect]
     Indication: RENAL FAILURE CHRONIC
     Route: 058
     Dates: start: 20051201
  2. DIGOXIN [Concomitant]
  3. LASIX [Concomitant]
  4. DIURIL [Concomitant]
  5. ENALAPRIL MALEATE [Concomitant]
  6. NIFEREX [Concomitant]
  7. SILDENAFIL CITRATE [Concomitant]
  8. COUMADIN [Concomitant]
  9. HECTORAL [Concomitant]
  10. PROSTACYCLIN [Concomitant]
     Route: 042

REACTIONS (7)
  - CEREBROVASCULAR ACCIDENT [None]
  - CONVULSION [None]
  - DYSARTHRIA [None]
  - GAIT DISTURBANCE [None]
  - LETHARGY [None]
  - MOVEMENT DISORDER [None]
  - SEPSIS [None]
